FAERS Safety Report 8896875 (Version 3)
Quarter: 2013Q1

REPORT INFORMATION
  Report Type: Report from Study
  Country: US (occurrence: US)
  Receive Date: 20121108
  Receipt Date: 20130211
  Transmission Date: 20140127
  Serious: Yes (Hospitalization)
  Sender: FDA-Public Use
  Company Number: US-JNJFOC-20121103859

PATIENT
  Age: 20 Year
  Sex: Male
  Weight: 72.1 kg

DRUGS (1)
  1. REMICADE [Suspect]
     Indication: INFLAMMATORY BOWEL DISEASE
     Route: 042
     Dates: start: 20090511

REACTIONS (2)
  - Crohn^s disease [Not Recovered/Not Resolved]
  - Salmonellosis [Not Recovered/Not Resolved]
